FAERS Safety Report 22339729 (Version 1)
Quarter: 2023Q2

REPORT INFORMATION
  Report Type: Spontaneous
  Country: AU (occurrence: AU)
  Receive Date: 20230518
  Receipt Date: 20230518
  Transmission Date: 20230721
  Serious: Yes (Other)
  Sender: FDA-Public Use
  Company Number: AU-JNJFOC-20230511415

PATIENT
  Age: 80 Year
  Sex: Female

DRUGS (3)
  1. SIMPONI [Suspect]
     Active Substance: GOLIMUMAB
     Indication: Psoriatic arthropathy
     Route: 058
     Dates: start: 201712
  2. SULFASALAZINE [Concomitant]
     Active Substance: SULFASALAZINE
     Dosage: COMMENCED END OF ADMISSION, INPATIENT REHAB
  3. PREDNISONE [Concomitant]
     Active Substance: PREDNISONE
     Dosage: MODERATE DOSE PREDNISONE REQUIREMENT (15-20MG)

REACTIONS (5)
  - Intestinal adenocarcinoma [Unknown]
  - Psoriatic arthropathy [Unknown]
  - Hernia [Unknown]
  - Alopecia [Unknown]
  - Treatment failure [Unknown]

NARRATIVE: CASE EVENT DATE: 20180101
